FAERS Safety Report 24268412 (Version 1)
Quarter: 2024Q3

REPORT INFORMATION
  Report Type: Report from Study
  Country: BR (occurrence: BR)
  Receive Date: 20240830
  Receipt Date: 20240830
  Transmission Date: 20241017
  Serious: Yes (Other)
  Sender: MYLAN
  Company Number: BR-MYLANLABS-2024M1079145

PATIENT
  Sex: Female
  Weight: 52 kg

DRUGS (1)
  1. LIPITOR [Suspect]
     Active Substance: ATORVASTATIN CALCIUM
     Indication: Type IIa hyperlipidaemia
     Dosage: 40 MILLIGRAM, PM(AT NIGHT)
     Route: 048

REACTIONS (3)
  - Deafness [Not Recovered/Not Resolved]
  - Constipation [Not Recovered/Not Resolved]
  - Gastrointestinal disorder [Not Recovered/Not Resolved]
